FAERS Safety Report 10199528 (Version 1)
Quarter: 2014Q2

REPORT INFORMATION
  Report Type: Spontaneous
  Country: JP (occurrence: JP)
  Receive Date: 20140527
  Receipt Date: 20140527
  Transmission Date: 20141212
  Serious: Yes (Hospitalization)
  Sender: FDA-Public Use
  Company Number: JP-MYLANLABS-2014S1011490

PATIENT
  Age: 54 Year
  Sex: Female

DRUGS (1)
  1. HYDROXYZINE [Suspect]
     Indication: RASH
     Route: 065

REACTIONS (2)
  - Cerebral vasoconstriction [Recovered/Resolved]
  - Subarachnoid haemorrhage [Recovered/Resolved]
